FAERS Safety Report 10668532 (Version 4)
Quarter: 2015Q1

REPORT INFORMATION
  Report Type: Report from Study
  Country: CA (occurrence: CA)
  Receive Date: 20141222
  Receipt Date: 20150318
  Transmission Date: 20150720
  Serious: Yes (Other)
  Sender: FDA-Public Use
  Company Number: PHHY2011CA18246

PATIENT
  Age: 57 Year
  Sex: Female

DRUGS (4)
  1. SANDOSTATIN LAR DEPOT [Suspect]
     Active Substance: OCTREOTIDE ACETATE
     Indication: ACROMEGALY
     Dosage: 30 MG, EVERY 4 WEEKS
     Route: 030
     Dates: start: 20101206
  2. APO BROMOCRIPTIN [Concomitant]
     Dosage: 5 MG, EVERY 2 WEEKS
     Route: 065
  3. SANDOSTATIN LAR DEPOT [Suspect]
     Active Substance: OCTREOTIDE ACETATE
     Dosage: 40 MG EVERY 4 WEEKS
     Route: 030
  4. APO BROMOCRIPTIN [Concomitant]
     Indication: PRODUCT USED FOR UNKNOWN INDICATION
     Dosage: 2.5 MG, EVERY 2 WEEKS
     Route: 065

REACTIONS (24)
  - Hyperhidrosis [Unknown]
  - Dermatitis contact [Unknown]
  - Chills [Unknown]
  - Injection site pain [Unknown]
  - Nasopharyngitis [Unknown]
  - Skin fissures [Unknown]
  - Gait disturbance [Unknown]
  - Weight decreased [Unknown]
  - Body temperature decreased [Unknown]
  - Renal neoplasm [Unknown]
  - Feeling hot [Unknown]
  - Erythema [Recovered/Resolved]
  - Inflammation [Unknown]
  - Blood pressure systolic increased [Unknown]
  - Heart rate decreased [Unknown]
  - Eczema [Unknown]
  - Drug administration error [Unknown]
  - Injection site mass [Unknown]
  - Constipation [Unknown]
  - Blood pressure increased [Unknown]
  - Pruritus [Recovered/Resolved]
  - Skin fibrosis [Unknown]
  - Skin injury [Unknown]
  - Fatigue [Not Recovered/Not Resolved]

NARRATIVE: CASE EVENT DATE: 20130425
